FAERS Safety Report 14435635 (Version 1)
Quarter: 2018Q1

REPORT INFORMATION
  Report Type: Spontaneous
  Country: US (occurrence: US)
  Receive Date: 20180125
  Receipt Date: 20180125
  Transmission Date: 20180509
  Serious: No
  Sender: FDA-Public Use
  Company Number: US-UNITED THERAPEUTICS-UNT-2017-012529

PATIENT
  Sex: Female

DRUGS (3)
  1. ORENITRAM [Suspect]
     Active Substance: TREPROSTINIL
     Dosage: 1.5 MG, TID
     Route: 048
     Dates: start: 20170607, end: 20170829
  2. ORENITRAM [Suspect]
     Active Substance: TREPROSTINIL
     Indication: PULMONARY ARTERIAL HYPERTENSION
     Dosage: 1.375 MG, TID
     Route: 048
     Dates: start: 20170607
  3. ORENITRAM [Suspect]
     Active Substance: TREPROSTINIL
     Dosage: 1.25 MG, TID
     Route: 048
     Dates: start: 20170829

REACTIONS (11)
  - Movement disorder [Recovering/Resolving]
  - Peripheral swelling [Unknown]
  - Burning sensation [Recovering/Resolving]
  - Headache [Unknown]
  - Sleep disorder [Unknown]
  - Weight increased [Unknown]
  - Pain [Recovering/Resolving]
  - Paraesthesia [Unknown]
  - Visual impairment [Unknown]
  - Nausea [Unknown]
  - Urinary tract infection [Unknown]

NARRATIVE: CASE EVENT DATE: 2017
